FAERS Safety Report 16967999 (Version 2)
Quarter: 2022Q3

REPORT INFORMATION
  Report Type: Report from Study
  Country: US (occurrence: US)
  Receive Date: 20191028
  Receipt Date: 20220915
  Transmission Date: 20221027
  Serious: Yes (Hospitalization, Other)
  Sender: FDA-Public Use
  Company Number: US-NOVARTISPH-PHHO2019US005807

PATIENT
  Age: 70 Year
  Sex: Female

DRUGS (5)
  1. DIOVAN [Suspect]
     Active Substance: VALSARTAN
     Indication: Cardiac failure chronic
     Dosage: 160 MG, BID
     Route: 048
     Dates: start: 20171117, end: 20190529
  2. DIOVAN [Suspect]
     Active Substance: VALSARTAN
     Indication: Ejection fraction
  3. PLACEBO [Suspect]
     Active Substance: UNSPECIFIED INGREDIENT
     Indication: Cardiac failure chronic
     Dosage: UNK
     Route: 048
     Dates: start: 20171117, end: 20190529
  4. PLACEBO [Suspect]
     Active Substance: UNSPECIFIED INGREDIENT
     Indication: Ejection fraction
  5. HYDRALAZINE [Concomitant]
     Active Substance: HYDRALAZINE HYDROCHLORIDE
     Indication: Product used for unknown indication
     Dosage: UNK
     Route: 065

REACTIONS (3)
  - Acute myocardial infarction [Recovered/Resolved with Sequelae]
  - Acute respiratory failure [Recovered/Resolved]
  - Chronic kidney disease [Not Recovered/Not Resolved]

NARRATIVE: CASE EVENT DATE: 20190507
